FAERS Safety Report 8348023-4 (Version None)
Quarter: 2012Q2

REPORT INFORMATION
  Report Type: 
  Country: None (occurrence: None)
  Receive Date: 20120507
  Receipt Date: 20120425
  Transmission Date: 20120825
  Serious: Yes (Other)
  Sender: FDA-Public Use
  Company Number: USA/FRA/12/0024137

PATIENT
  Age: 79 Year
  Sex: Male

DRUGS (12)
  1. CLOPIDEGREL [Suspect]
     Indication: PRODUCT USED FOR UNKNOWN INDICATION
     Dosage: 75 GBQ, 1 IN 1 D
  2. PRAVASTATIN [Concomitant]
  3. RAMIPRIL [Concomitant]
  4. ILOPROST (ILOPROST) [Suspect]
     Indication: CHRONIC OBSTRUCTIVE PULMONARY DISEASE
     Dosage: 5 MCG, 6 IN 1 D, NASAL
     Route: 045
  5. SILDENAFIL CITRATE [Concomitant]
  6. FUROSEMIDE [Concomitant]
  7. TIOTROPIUM BROMIDE (TIOTROPIUM BROMIDE) [Concomitant]
  8. AMIODARONE HCL [Concomitant]
  9. FLUINDIONE (FLUINDIONE) [Suspect]
     Indication: PRODUCT USED FOR UNKNOWN INDICATION
     Dosage: 20 MG, 1 IN 1 D
  10. MOLSIDOMINE (MOLSIDOMINE) [Concomitant]
  11. BOSENTAN (BOSENTAN) [Concomitant]
  12. POTASSIUM CHLORIDE [Concomitant]

REACTIONS (4)
  - ANGIODYSPLASIA [None]
  - GASTROINTESTINAL HAEMORRHAGE [None]
  - IRON DEFICIENCY ANAEMIA [None]
  - COLONIC POLYP [None]
